FAERS Safety Report 10200355 (Version 2)
Quarter: 2014Q2

REPORT INFORMATION
  Report Type: Spontaneous
  Country: DE (occurrence: DE)
  Receive Date: 20140528
  Receipt Date: 20140606
  Transmission Date: 20141212
  Serious: Yes (Hospitalization, Other)
  Sender: FDA-Public Use
  Company Number: DE-UCBSA-122928

PATIENT
  Age: 69 Year
  Sex: Female

DRUGS (4)
  1. NEUPRO [Suspect]
     Indication: PARKINSON^S DISEASE
     Dosage: 16 MG, ONCE DAILY (QD)
     Route: 062
     Dates: start: 201102, end: 201103
  2. CLOZAPIN [Concomitant]
  3. RIVASTIGMIN [Concomitant]
  4. STALEVO [Concomitant]
     Dosage: 75 MG, 8X/DAY
     Route: 048
     Dates: start: 201102, end: 201103

REACTIONS (3)
  - Psychotic disorder [Recovered/Resolved]
  - Dehydration [Unknown]
  - Libido increased [Recovered/Resolved]
